FAERS Safety Report 8192741-8 (Version None)
Quarter: 2012Q1

REPORT INFORMATION
  Report Type: 
  Country: None (occurrence: None)
  Receive Date: 20120308
  Receipt Date: 20120305
  Transmission Date: 20120608
  Serious: No
  Sender: FDA-Public Use
  Company Number: US-PFIZER INC-2012058879

PATIENT
  Sex: Male
  Weight: 56.689 kg

DRUGS (5)
  1. SPIRIVA [Concomitant]
     Indication: CHRONIC OBSTRUCTIVE PULMONARY DISEASE
     Dosage: UNK
  2. PREDNISONE [Concomitant]
     Dosage: UNK
  3. NICOTROL [Suspect]
     Indication: CHRONIC OBSTRUCTIVE PULMONARY DISEASE
     Dosage: 10 MG, AS NEEDED
     Route: 055
     Dates: start: 20120202, end: 20120204
  4. ASPIRIN [Concomitant]
     Dosage: UNK
  5. ADVAIR DISKUS 100/50 [Concomitant]
     Indication: CHRONIC OBSTRUCTIVE PULMONARY DISEASE
     Dosage: UNK

REACTIONS (2)
  - NAUSEA [None]
  - DIZZINESS [None]
